FAERS Safety Report 9323993 (Version 3)
Quarter: 2013Q3

REPORT INFORMATION
  Report Type: Spontaneous
  Country: US (occurrence: US)
  Receive Date: 20130603
  Receipt Date: 20130807
  Transmission Date: 20140515
  Serious: Yes (Hospitalization)
  Sender: FDA-Public Use
  Company Number: US-PFIZER INC-2013164874

PATIENT
  Age: 43 Year
  Sex: Female

DRUGS (13)
  1. SOLU-MEDROL [Suspect]
     Indication: MULTIPLE SCLEROSIS
     Dosage: 1 G, MONTHLY
     Route: 042
     Dates: start: 20111207, end: 20120807
  2. SOLU-MEDROL [Suspect]
     Indication: SARCOIDOSIS
     Dosage: 1 G, MONTHLY
     Route: 042
     Dates: start: 20121030, end: 20121101
  3. SOLU-MEDROL [Suspect]
     Indication: HYPERSENSITIVITY
  4. REBIF [Suspect]
     Indication: MULTIPLE SCLEROSIS
     Dosage: 44 UG, 3 IN 1 WK
     Route: 058
     Dates: start: 20091229
  5. REBIF [Suspect]
     Dosage: UNK (3 IN 1 WK)
     Route: 058
     Dates: start: 20110428, end: 20121016
  6. BACLOFEN [Concomitant]
     Dosage: UNK
  7. NEURONTIN [Concomitant]
     Dosage: UNK
  8. LYRICA [Concomitant]
     Dosage: UNK
  9. CYMBALTA [Concomitant]
     Dosage: UNK
  10. PREDNISONE [Concomitant]
     Dosage: UNK
     Route: 047
  11. PRILOSEC [Concomitant]
     Dosage: UNK
  12. PROVIGIL [Concomitant]
     Dosage: UNK
  13. DANAZOL [Concomitant]
     Dosage: UNK

REACTIONS (8)
  - Pneumonia pneumococcal [Recovered/Resolved]
  - Gait disturbance [Not Recovered/Not Resolved]
  - Paraparesis [Recovered/Resolved]
  - Rash [Recovered/Resolved]
  - Hypersensitivity [Recovered/Resolved]
  - Multiple sclerosis relapse [Recovered/Resolved]
  - Injection site bruising [Not Recovered/Not Resolved]
  - Injection site reaction [Unknown]
